FAERS Safety Report 20414508 (Version 1)
Quarter: 2022Q1

REPORT INFORMATION
  Report Type: Report from Study
  Country: US (occurrence: US)
  Receive Date: 20220202
  Receipt Date: 20220202
  Transmission Date: 20220424
  Serious: Yes (Other)
  Sender: FDA-Public Use
  Company Number: US-EXELIXIS-CABO-22048418

PATIENT
  Sex: Male

DRUGS (20)
  1. CABOMETYX [Suspect]
     Active Substance: CABOZANTINIB S-MALATE
     Indication: Renal cancer
     Dosage: 40 MG, QD
     Route: 048
     Dates: start: 20170826
  2. CABOMETYX [Suspect]
     Active Substance: CABOZANTINIB S-MALATE
     Dosage: 40 MG, QD
     Route: 048
  3. ACETAMINOPHEN [Concomitant]
     Active Substance: ACETAMINOPHEN
  4. ACYCLOVIR [Concomitant]
     Active Substance: ACYCLOVIR
  5. ALPRAZOLAM [Concomitant]
     Active Substance: ALPRAZOLAM
  6. CIPROFLOXACIN [Concomitant]
     Active Substance: CIPROFLOXACIN
  7. CLOBETASOL [Concomitant]
     Active Substance: CLOBETASOL
  8. FLUTICASONE [Concomitant]
     Active Substance: FLUTICASONE
  9. HYDROCODONE [Concomitant]
     Active Substance: HYDROCODONE
  10. A-HYDROCORT [Concomitant]
     Active Substance: HYDROCORTISONE SODIUM SUCCINATE
  11. INLYTA [Concomitant]
     Active Substance: AXITINIB
  12. LISINOPRIL [Concomitant]
     Active Substance: LISINOPRIL
  13. METFORMIN HYDROCHLORIDE [Concomitant]
     Active Substance: METFORMIN HYDROCHLORIDE
  14. METOPROLOL TARTRATE [Concomitant]
     Active Substance: METOPROLOL TARTRATE
  15. METOPROLOL [Concomitant]
     Active Substance: METOPROLOL
  16. NITROGLYCERIN [Concomitant]
     Active Substance: NITROGLYCERIN
  17. ACETAMINOPHEN\OXYCODONE HYDROCHLORIDE [Concomitant]
     Active Substance: ACETAMINOPHEN\OXYCODONE HYDROCHLORIDE
  18. PRAVASTATIN [Concomitant]
     Active Substance: PRAVASTATIN
  19. SUTENT [Concomitant]
     Active Substance: SUNITINIB MALATE
  20. TRAMADOL HCL [Concomitant]
     Active Substance: TRAMADOL HYDROCHLORIDE

REACTIONS (2)
  - Cataract [Unknown]
  - Red blood cell count decreased [Unknown]
